FAERS Safety Report 12277000 (Version 1)
Quarter: 2016Q2

REPORT INFORMATION
  Report Type: Spontaneous
  Country: AR (occurrence: AR)
  Receive Date: 20160418
  Receipt Date: 20160418
  Transmission Date: 20160815
  Serious: Yes (Hospitalization)
  Sender: FDA-Public Use
  Company Number: AR-PFIZER INC-2016204627

PATIENT
  Age: 62 Year
  Sex: Female

DRUGS (1)
  1. INLYTA [Suspect]
     Active Substance: AXITINIB
     Indication: RENAL CANCER
     Dosage: 10 MG, DAILY
     Dates: start: 20160310

REACTIONS (2)
  - Diarrhoea [Recovered/Resolved]
  - Bone disorder [Recovering/Resolving]

NARRATIVE: CASE EVENT DATE: 20160405
